FAERS Safety Report 20850362 (Version 1)
Quarter: 2022Q2

REPORT INFORMATION
  Report Type: Spontaneous
  Country: US (occurrence: US)
  Receive Date: 20220519
  Receipt Date: 20220519
  Transmission Date: 20220720
  Serious: No
  Sender: FDA-Public Use
  Company Number: US-BAYER-2022A064790

PATIENT
  Age: 69 Year
  Sex: Female

DRUGS (1)
  1. CLIMARA PRO [Suspect]
     Active Substance: ESTRADIOL\LEVONORGESTREL
     Dosage: UNK
     Route: 062
     Dates: end: 202204

REACTIONS (2)
  - Bone pain [Not Recovered/Not Resolved]
  - Product availability issue [None]

NARRATIVE: CASE EVENT DATE: 20220401
